FAERS Safety Report 9892685 (Version 1)
Quarter: 2014Q1

REPORT INFORMATION
  Report Type: Spontaneous
  Country: CO (occurrence: CO)
  Receive Date: 20140212
  Receipt Date: 20140212
  Transmission Date: 20141002
  Serious: Yes (Hospitalization)
  Sender: FDA-Public Use
  Company Number: CO-MYLANLABS-2014S1002127

PATIENT
  Age: 32 Year
  Sex: Male

DRUGS (1)
  1. TACROLIMUS [Suspect]
     Route: 065

REACTIONS (3)
  - Posterior reversible encephalopathy syndrome [Recovering/Resolving]
  - Cerebral haemorrhage [Recovering/Resolving]
  - Leukocytosis [Recovering/Resolving]
